FAERS Safety Report 25986040 (Version 1)
Quarter: 2025Q4

REPORT INFORMATION
  Report Type: Spontaneous
  Country: EU (occurrence: EU)
  Receive Date: 20251031
  Receipt Date: 20251031
  Transmission Date: 20260117
  Serious: Yes (Other)
  Sender: BAUSCH AND LOMB
  Company Number: EU-NORGINELIMITED-NOR202503743

PATIENT
  Age: 83 Year
  Sex: Male

DRUGS (1)
  1. PLENVU [Suspect]
     Active Substance: ASCORBIC ACID\POLYETHYLENE GLYCOL 3350\POTASSIUM CHLORIDE\SODIUM ASCORBATE\SODIUM CHLORIDE\SODIUM SU
     Indication: Product used for unknown indication
     Dosage: BOTH DOSE 1 AND DOSE 2
     Route: 065

REACTIONS (3)
  - Fall [Unknown]
  - Head injury [Unknown]
  - Syncope [Unknown]
